FAERS Safety Report 5945058-3 (Version None)
Quarter: 2008Q4

REPORT INFORMATION
  Report Type: 
  Country: None (occurrence: None)
  Receive Date: 20081107
  Receipt Date: 20081028
  Transmission Date: 20090506
  Serious: Yes (Death, Hospitalization)
  Sender: FDA-Public Use
  Company Number: ES-WYE-G02365408

PATIENT
  Age: 71 Year
  Sex: Female

DRUGS (3)
  1. TAZOCEL [Suspect]
     Indication: PNEUMONIA ASPIRATION
     Route: 042
     Dates: start: 20080421, end: 20080428
  2. NALOXONE [Concomitant]
     Dosage: UNKNOWN
     Route: 042
  3. ACETAMINOPHEN [Concomitant]
     Dosage: UNKNOWN
     Route: 042

REACTIONS (4)
  - CARDIAC ARREST [None]
  - CLOSTRIDIUM DIFFICILE COLITIS [None]
  - ILEUS PARALYTIC [None]
  - MEGACOLON [None]
